FAERS Safety Report 9744906 (Version 3)
Quarter: 2018Q2

REPORT INFORMATION
  Report Type: Report from Study
  Country: ZA (occurrence: ZA)
  Receive Date: 20131211
  Receipt Date: 20180607
  Transmission Date: 20180711
  Serious: Yes (Death, Hospitalization)
  Sender: FDA-Public Use
  Company Number: ZA-ROCHE-1314714

PATIENT
  Age: 67 Year
  Sex: Male

DRUGS (9)
  1. MIRCERA [Suspect]
     Active Substance: METHOXY POLYETHYLENE GLYCOL-EPOETIN BETA
     Route: 042
     Dates: start: 200909
  2. ONE ALPHA [Concomitant]
     Active Substance: ALFACALCIDOL
     Route: 065
  3. NIFEDIPINE. [Concomitant]
     Active Substance: NIFEDIPINE
     Route: 065
  4. FUROSEMIDE. [Concomitant]
     Active Substance: FUROSEMIDE
     Route: 065
  5. EPOETIN BETA [Suspect]
     Active Substance: ERYTHROPOIETIN
     Indication: PRODUCT USED FOR UNKNOWN INDICATION
     Route: 058
  6. SIMVASTATIN. [Concomitant]
     Active Substance: SIMVASTATIN
     Dosage: 20MG ONCE A DAY AT NIGHT (NOCTE)
     Route: 065
  7. MIRCERA [Suspect]
     Active Substance: METHOXY POLYETHYLENE GLYCOL-EPOETIN BETA
     Indication: NEPHROGENIC ANAEMIA
     Route: 058
     Dates: start: 201007, end: 201311
  8. CARVEDILOL. [Concomitant]
     Active Substance: CARVEDILOL
     Route: 065
  9. VENOFER [Concomitant]
     Active Substance: IRON SUCROSE

REACTIONS (5)
  - Death [Fatal]
  - Sepsis [Not Recovered/Not Resolved]
  - Abdominal strangulated hernia [Not Recovered/Not Resolved]
  - Gastrointestinal necrosis [Unknown]
  - Arthropod bite [Unknown]

NARRATIVE: CASE EVENT DATE: 20131125
